FAERS Safety Report 5265134-0 (Version None)
Quarter: 2007Q1

REPORT INFORMATION
  Report Type: 
  Country: None (occurrence: None)
  Receive Date: 20061121
  Receipt Date: 20060808
  Transmission Date: 20070707
  Serious: No
  Sender: FDA-Public Use
  Company Number: TPA2006A01298

PATIENT
  Age: 44 Year
  Sex: Female
  Weight: 90.7194 kg

DRUGS (4)
  1. ROZEREM [Suspect]
     Indication: INSOMNIA
     Dosage: 8 MG,  HS, PER ORAL
     Route: 048
     Dates: start: 20060627
  2. NORTRIPTYLINE HCL [Concomitant]
  3. VERAPAMIL [Concomitant]
  4. LEVOXYL [Concomitant]

REACTIONS (4)
  - PARAESTHESIA ORAL [None]
  - PHARYNGOLARYNGEAL PAIN [None]
  - SOMNOLENCE [None]
  - SWOLLEN TONGUE [None]
